FAERS Safety Report 7986392-5 (Version None)
Quarter: 2011Q4

REPORT INFORMATION
  Report Type: 
  Country: None (occurrence: None)
  Receive Date: 20111216
  Receipt Date: 20110607
  Transmission Date: 20120403
  Serious: No
  Sender: FDA-Public Use
  Company Number: US-GLAXOSMITHKLINE-A0930593A

PATIENT
  Age: 56 Year
  Sex: Male

DRUGS (2)
  1. COREG CR [Suspect]
     Indication: HYPERTENSION
     Dosage: 40MG PER DAY
     Route: 048
     Dates: start: 20110201
  2. CITRUCEL [Concomitant]

REACTIONS (2)
  - GASTROINTESTINAL DISORDER [None]
  - DIARRHOEA [None]
